FAERS Safety Report 11960395 (Version 1)
Quarter: 2016Q1

REPORT INFORMATION
  Report Type: Report from Study
  Country: US (occurrence: US)
  Receive Date: 20160126
  Receipt Date: 20160126
  Transmission Date: 20160526
  Serious: No
  Sender: FDA-Public Use
  Company Number: US-ABBVIE-15K-163-1358218-00

PATIENT
  Age: 67 Year
  Sex: Female

DRUGS (1)
  1. HUMIRA [Suspect]
     Active Substance: ADALIMUMAB
     Indication: ANKYLOSING SPONDYLITIS
     Route: 065
     Dates: start: 20140915, end: 20150215

REACTIONS (6)
  - Urticaria [Recovered/Resolved]
  - Breast pain [Recovered/Resolved]
  - Pruritus allergic [Recovered/Resolved]
  - Dyspnoea [Recovered/Resolved]
  - Dermatitis allergic [Recovered/Resolved]
  - Pain in extremity [Recovered/Resolved]

NARRATIVE: CASE EVENT DATE: 20141230
